FAERS Safety Report 6569843-2 (Version None)
Quarter: 2010Q1

REPORT INFORMATION
  Report Type: 
  Country: None (occurrence: None)
  Receive Date: 20100204
  Receipt Date: 20100127
  Transmission Date: 20100710
  Serious: Yes (Other)
  Sender: FDA-Public Use
  Company Number: US-SANOFI-AVENTIS-2010SA005225

PATIENT
  Age: 80 Year
  Sex: Male

DRUGS (2)
  1. DRONEDARONE [Suspect]
     Route: 048
     Dates: start: 20100101
  2. COUMADIN [Suspect]
     Indication: ATRIAL FIBRILLATION
     Route: 065

REACTIONS (2)
  - EYE HAEMORRHAGE [None]
  - INTERNATIONAL NORMALISED RATIO INCREASED [None]
